FAERS Safety Report 6417147-0 (Version None)
Quarter: 2009Q4

REPORT INFORMATION
  Report Type: 
  Country: None (occurrence: None)
  Receive Date: 20091028
  Receipt Date: 20091026
  Transmission Date: 20100525
  Serious: Yes (Other)
  Sender: FDA-Public Use
  Company Number: CH-WYE-G04712509

PATIENT
  Sex: Female

DRUGS (2)
  1. TORISEL [Suspect]
     Indication: LYMPHOMA
     Dosage: UNKNOWN DOSAGE AND DURATION
  2. TORISEL [Suspect]
     Indication: OFF LABEL USE

REACTIONS (2)
  - DISEASE PROGRESSION [None]
  - DRUG EFFECT DECREASED [None]
